FAERS Safety Report 9346839 (Version 4)
Quarter: 2013Q4

REPORT INFORMATION
  Report Type: Report from Study
  Country: GB (occurrence: GB)
  Receive Date: 20130613
  Receipt Date: 20131003
  Transmission Date: 20140711
  Serious: Yes (Hospitalization, Disabling, Other)
  Sender: FDA-Public Use
  Company Number: GB-VERTEX PHARMACEUTICALS INC-2013-006998

PATIENT
  Age: 60 Year
  Sex: Male

DRUGS (5)
  1. VX-950 (TELAPREVIR) [Suspect]
     Indication: HEPATITIS C
     Dosage: 750 MG, TID
     Route: 048
     Dates: start: 201304, end: 20130617
  2. VX-950 (TELAPREVIR) [Suspect]
     Dosage: UNK
     Route: 048
     Dates: start: 20130411, end: 20130731
  3. PEGINTERFERON ALFA [Suspect]
     Indication: HEPATITIS C
     Dosage: UNK, QW
     Route: 058
     Dates: start: 201304
  4. PEGINTERFERON ALFA [Suspect]
     Dosage: UNK
     Route: 058
     Dates: start: 20130411, end: 20130731
  5. RIBAVIRIN [Suspect]
     Indication: HEPATITIS C
     Dosage: UNK
     Route: 048
     Dates: start: 20130411, end: 20130731

REACTIONS (16)
  - Dyspnoea [Not Recovered/Not Resolved]
  - Tremor [Not Recovered/Not Resolved]
  - Skin swelling [Not Recovered/Not Resolved]
  - Feeling abnormal [Not Recovered/Not Resolved]
  - Scar [Not Recovered/Not Resolved]
  - Memory impairment [Not Recovered/Not Resolved]
  - Argyll-Robertson pupils [Unknown]
  - Syphilis [Unknown]
  - Ataxia [Recovered/Resolved]
  - Abasia [Not Recovered/Not Resolved]
  - Head titubation [Not Recovered/Not Resolved]
  - Pancytopenia [Recovered/Resolved]
  - Retinopathy [Recovered/Resolved]
  - Swelling face [Not Recovered/Not Resolved]
  - Dermatitis [Unknown]
  - Rash [Not Recovered/Not Resolved]
